FAERS Safety Report 5343452-5 (Version None)
Quarter: 2007Q2

REPORT INFORMATION
  Report Type: 
  Country: None (occurrence: None)
  Receive Date: 20070531
  Receipt Date: 20070102
  Transmission Date: 20071010
  Serious: Yes (Other)
  Sender: FDA-Public Use
  Company Number: 2007VX000001

PATIENT
  Sex: Female
  Weight: 60 kg

DRUGS (2)
  1. FLURAZEPAM HYDROCHLORIDE (FLURAZEPAM HYDROCHLORIDE) (30 MG) [Suspect]
     Dosage: 1200 MG; X1; PO
     Route: 048
  2. PROMETHAZINE [Suspect]
     Dosage: 1000 MG;X1;PO
     Route: 048

REACTIONS (4)
  - MULTIPLE DRUG OVERDOSE [None]
  - SOMNOLENCE [None]
  - SUICIDE ATTEMPT [None]
  - VOMITING [None]
